FAERS Safety Report 25888451 (Version 1)
Quarter: 2025Q4

REPORT INFORMATION
  Report Type: Report from Study
  Country: GB (occurrence: GB)
  Receive Date: 20251007
  Receipt Date: 20251007
  Transmission Date: 20260118
  Serious: Yes (Hospitalization)
  Sender: ROCHE
  Company Number: GB-ROCHE-10000400457

PATIENT
  Sex: Female

DRUGS (3)
  1. OCREVUS [Suspect]
     Active Substance: OCRELIZUMAB
     Indication: Primary progressive multiple sclerosis
     Route: 042
  2. OCREVUS [Suspect]
     Active Substance: OCRELIZUMAB
     Indication: Relapsing-remitting multiple sclerosis
  3. METHOTREXATE [Concomitant]
     Active Substance: METHOTREXATE
     Indication: Arthritis

REACTIONS (3)
  - Swelling [Recovering/Resolving]
  - Sinusitis [Recovered/Resolved]
  - Dyspnoea [Recovering/Resolving]
